FAERS Safety Report 7902054-4 (Version None)
Quarter: 2011Q4

REPORT INFORMATION
  Report Type: 
  Country: None (occurrence: None)
  Receive Date: 20111107
  Receipt Date: 20111107
  Transmission Date: 20120403
  Serious: Yes (Hospitalization)
  Sender: FDA-Public Use
  Company Number: None

PATIENT
  Age: 66 Year
  Sex: Male
  Weight: 118.6 kg

DRUGS (2)
  1. WARFARIN SODIUM [Suspect]
     Indication: DEEP VEIN THROMBOSIS
     Dosage: 2 MG, PO
     Route: 048
     Dates: start: 20110808, end: 20110916
  2. CLOPIDOGREL [Suspect]
     Dosage: 75 MG, EVERY DAY, PO
     Route: 048
     Dates: start: 20061026

REACTIONS (2)
  - RECTAL HAEMORRHAGE [None]
  - GASTRIC HAEMORRHAGE [None]
